FAERS Safety Report 7442197-5 (Version None)
Quarter: 2011Q2

REPORT INFORMATION
  Report Type: 
  Country: None (occurrence: None)
  Receive Date: 20110419
  Receipt Date: 20110406
  Transmission Date: 20111010
  Serious: Yes (Hospitalization)
  Sender: FDA-Public Use
  Company Number: US-JNJFOC-20100305999

PATIENT
  Age: 69 Year
  Sex: Male
  Weight: 95.5 kg

DRUGS (21)
  1. LASIX [Concomitant]
  2. PERCOCET [Concomitant]
  3. WELLBUTRIN [Concomitant]
  4. PERCOCET [Concomitant]
  5. ZOCOR [Concomitant]
  6. DECITABINE [Suspect]
     Indication: MYELODYSPLASTIC SYNDROME
     Dosage: 30 MG, ORAL
     Route: 048
     Dates: start: 20100201, end: 20100201
  7. LISINOPRIL [Concomitant]
  8. METFORMIN HCL [Concomitant]
  9. FOLIC ACID [Concomitant]
  10. VITAMIN B12 [Concomitant]
  11. METOPROLOL (METOPROLOL) [Concomitant]
  12. SIMVASTATIN [Concomitant]
  13. GLIPIZIDE [Concomitant]
  14. ZESTRIL [Concomitant]
  15. ZYLOPRIM [Concomitant]
  16. ALLOPURINOL [Concomitant]
  17. DECITABINE [Suspect]
     Indication: MYELODYSPLASTIC SYNDROME
     Dosage: 20 MG, INTRAVENOUS
     Route: 042
     Dates: start: 20100202
  18. CELEXA [Concomitant]
  19. PLAVIX [Concomitant]
  20. AMBIEN [Concomitant]
  21. ASPIRIN [Concomitant]

REACTIONS (7)
  - DYSPNOEA [None]
  - CHOLECYSTITIS [None]
  - DIARRHOEA [None]
  - OEDEMA PERIPHERAL [None]
  - CAECITIS [None]
  - FLUID OVERLOAD [None]
  - NEUTROPENIC COLITIS [None]
